FAERS Safety Report 10013469 (Version 3)
Quarter: 2014Q2

REPORT INFORMATION
  Report Type: Report from Study
  Country: AU (occurrence: AU)
  Receive Date: 20140314
  Receipt Date: 20140623
  Transmission Date: 20141212
  Serious: Yes (Hospitalization)
  Sender: FDA-Public Use
  Company Number: AU-EXELIXIS-XL18414004069

PATIENT
  Age: 53 Year
  Sex: Male
  Weight: 90.6 kg

DRUGS (13)
  1. XL184 [Suspect]
     Indication: PROSTATE CANCER
     Dosage: 60 MG, QD
     Route: 048
     Dates: start: 20130809
  2. XL184 [Suspect]
     Dosage: 40 MG, QD
     Route: 048
     Dates: end: 20140302
  3. XL184 [Suspect]
     Dosage: 40 MG, QD
     Route: 048
     Dates: start: 20140312
  4. XL184 [Suspect]
     Indication: PROSTATE CANCER
     Dosage: 5 MG, BID
     Route: 048
     Dates: start: 20130809
  5. VALTREX [Concomitant]
     Dosage: 500 MG, QD
     Route: 048
  6. PREDNISOLONE [Concomitant]
  7. ATORVASTATIN [Concomitant]
     Dosage: UNK UNK, QD
  8. LERCANIDIPINE [Concomitant]
  9. RAMIPRIL [Concomitant]
  10. SUPER MUSHROOM COMPLEX [Concomitant]
  11. ULTRA PREVENTATIVE [Concomitant]
  12. SLOW RECOVERY IMMUNE HEALTH [Concomitant]
  13. LYMPHODRAN PLUS [Concomitant]

REACTIONS (1)
  - Herpes simplex [Recovered/Resolved]
